FAERS Safety Report 5883797-3 (Version None)
Quarter: 2008Q3

REPORT INFORMATION
  Report Type: 
  Country: None (occurrence: None)
  Receive Date: 20080915
  Receipt Date: 20080904
  Transmission Date: 20090109
  Serious: Yes (Hospitalization, Other)
  Sender: FDA-Public Use
  Company Number: US-AMGEN-KDL221821

PATIENT
  Sex: Female
  Weight: 78.1 kg

DRUGS (11)
  1. ENBREL [Suspect]
     Indication: RHEUMATOID ARTHRITIS
     Route: 058
     Dates: start: 20011101, end: 20080501
  2. ATENOLOL [Concomitant]
  3. ATENOLOL [Concomitant]
     Route: 048
  4. LISINOPRIL [Concomitant]
  5. PROTONIX [Concomitant]
  6. ACTONEL [Concomitant]
  7. ADVAIR DISKUS 100/50 [Concomitant]
  8. LOVAZA [Concomitant]
  9. TYLENOL (CAPLET) [Concomitant]
  10. LIPITOR [Concomitant]
  11. RHINOCORT [Concomitant]
     Route: 045

REACTIONS (11)
  - BUNDLE BRANCH BLOCK RIGHT [None]
  - CHEST PAIN [None]
  - DIZZINESS [None]
  - FAMILY STRESS [None]
  - HYPERTENSION [None]
  - INFLAMMATION [None]
  - LYMPHADENITIS [None]
  - MYALGIA [None]
  - RHEUMATOID ARTHRITIS [None]
  - RHEUMATOID NODULE [None]
  - SARCOIDOSIS [None]
